FAERS Safety Report 9192661 (Version 1)
Quarter: 2013Q1

REPORT INFORMATION
  Report Type: Spontaneous
  Country: US (occurrence: None)
  Receive Date: 20120703
  Receipt Date: 20120703
  Transmission Date: 20140127
  Serious: No
  Sender: FDA-Public Use
  Company Number: PHEH2012US009199

PATIENT
  Age: 37 Year
  Sex: Female

DRUGS (2)
  1. GILENYA (FTY) CAPSULE, 0.5 MG [Suspect]
     Indication: MULTIPLE SCLEROSIS
     Route: 048
     Dates: start: 20110803, end: 20120503
  2. AVIANE (EHTINYLESTRADIOL, LEVONOGESTREL) [Concomitant]

REACTIONS (2)
  - Haemorrhage in pregnancy [None]
  - Maternal exposure during pregnancy [None]
